FAERS Safety Report 6274889-8 (Version None)
Quarter: 2009Q3

REPORT INFORMATION
  Report Type: 
  Country: None (occurrence: None)
  Receive Date: 20090717
  Receipt Date: 20090707
  Transmission Date: 20100115
  Serious: Yes (Death)
  Sender: FDA-Public Use
  Company Number: GXKR2009CH07855

PATIENT
  Age: 59 Year
  Sex: Male

DRUGS (8)
  1. AMOXICILLIN AND CLAVULANATE POTASSIUM [Suspect]
     Indication: BRONCHOPNEUMONIA
     Dosage: 1200 MG, QID, IV DRIP
     Route: 041
     Dates: start: 20090610, end: 20090613
  2. BECOZYM (BIOTIN, CALCIUM PANTOTHENATE, CYANOCOBALAMIN, NICOTINAMIDE, P [Concomitant]
  3. BENERVA (THIAMINE HYDROCHLORIDE) [Concomitant]
  4. FOLVITE (FOLIC ACID) [Concomitant]
  5. KONAKION [Concomitant]
  6. LASIX [Concomitant]
  7. SINTENYL (FENTANYL CITRATE) [Concomitant]
  8. POTASSIUM CHLORIDE [Concomitant]

REACTIONS (1)
  - ACUTE GENERALISED EXANTHEMATOUS PUSTULOSIS [None]
